FAERS Safety Report 21402420 (Version 8)
Quarter: 2024Q1

REPORT INFORMATION
  Report Type: Spontaneous
  Country: US (occurrence: US)
  Receive Date: 20221003
  Receipt Date: 20240222
  Transmission Date: 20240410
  Serious: No
  Sender: FDA-Public Use
  Company Number: US-PFIZER INC-PV202200073842

PATIENT
  Age: 75 Year
  Sex: Female
  Weight: 61.678 kg

DRUGS (1)
  1. XELJANZ [Suspect]
     Active Substance: TOFACITINIB CITRATE
     Indication: Rheumatoid arthritis
     Dosage: 5 MG, 2X/DAY
     Dates: start: 202111

REACTIONS (5)
  - Bacterial infection [Unknown]
  - Illness [Unknown]
  - Pain [Not Recovered/Not Resolved]
  - Blood pressure abnormal [Unknown]
  - Drug ineffective [Unknown]
